FAERS Safety Report 21835752 (Version 1)
Quarter: 2023Q1

REPORT INFORMATION
  Report Type: Report from Study
  Country: AU (occurrence: AU)
  Receive Date: 20230109
  Receipt Date: 20230109
  Transmission Date: 20230418
  Serious: Yes (Death, Other)
  Sender: FDA-Public Use
  Company Number: AU-002147023-NVSC2021AU301589

PATIENT
  Sex: Male

DRUGS (4)
  1. TRAMETINIB [Suspect]
     Active Substance: TRAMETINIB
     Indication: Glioma
     Dosage: 0.3 MG, QD (0.032 MG/KG)
     Route: 048
     Dates: start: 20190920
  2. DESMOPRESSIN [Concomitant]
     Active Substance: DESMOPRESSIN
     Indication: Hypopituitarism
     Dosage: 200MCG/ 150MCG/ 150MCG
     Route: 065
     Dates: start: 20190207
  3. THYROXINE [Concomitant]
     Active Substance: LEVOTHYROXINE
     Indication: Hypopituitarism
     Dosage: 37.5 UG, QD
     Route: 065
     Dates: start: 20190207
  4. HYDROCORTISONE [Concomitant]
     Active Substance: HYDROCORTISONE
     Indication: Hypopituitarism
     Dosage: 2MG/ 1MG/ 1MG
     Route: 065
     Dates: start: 20190207

REACTIONS (10)
  - Pulseless electrical activity [Fatal]
  - Septic shock [Unknown]
  - Adrenocortical insufficiency acute [Unknown]
  - Pyrexia [Unknown]
  - Altered state of consciousness [Unknown]
  - Hypoglycaemia [Unknown]
  - Intestinal ischaemia [Unknown]
  - Weight increased [Unknown]
  - Weight decreased [Unknown]
  - Neoplasm [Unknown]

NARRATIVE: CASE EVENT DATE: 20210101
